FAERS Safety Report 9094163 (Version 1)
Quarter: 2013Q1

REPORT INFORMATION
  Report Type: Spontaneous
  Country: US (occurrence: US)
  Receive Date: 20130131
  Receipt Date: 20130131
  Transmission Date: 20140127
  Serious: No
  Sender: FDA-Public Use
  Company Number: US-ABBOTT-12P-163-1015743-00

PATIENT
  Age: 53 Year
  Sex: Female

DRUGS (4)
  1. HUMIRA [Suspect]
     Indication: RHEUMATOID ARTHRITIS
     Dates: start: 20120802
  2. HUMIRA [Suspect]
     Dates: start: 20121128
  3. LEVOXYL [Concomitant]
     Indication: THYROID DISORDER
     Dosage: 20MCG DAILY
     Route: 048
  4. ADVIL [Concomitant]
     Indication: PAIN

REACTIONS (1)
  - Arthropathy [Not Recovered/Not Resolved]
